FAERS Safety Report 20500840 (Version 1)
Quarter: 2022Q1

REPORT INFORMATION
  Report Type: Spontaneous
  Country: US (occurrence: US)
  Receive Date: 20220222
  Receipt Date: 20220222
  Transmission Date: 20220423
  Serious: No
  Sender: FDA-Public Use
  Company Number: US-GSKCCFUS-Case-01295583_AE-75482

PATIENT
  Sex: Female

DRUGS (2)
  1. VALTREX [Suspect]
     Active Substance: VALACYCLOVIR HYDROCHLORIDE
     Indication: Oral herpes
     Dosage: 2000 MG, BID
     Route: 048
     Dates: start: 202201
  2. VALTREX [Suspect]
     Active Substance: VALACYCLOVIR HYDROCHLORIDE
     Dosage: 500 UNK, (1/2 TABLET) TWICE DAILY EVERY DAY

REACTIONS (3)
  - Intentional product use issue [Unknown]
  - Underdose [Unknown]
  - Drug ineffective [Unknown]
